FAERS Safety Report 8438711-3 (Version None)
Quarter: 2012Q2

REPORT INFORMATION
  Report Type: 
  Country: None (occurrence: None)
  Receive Date: 20120611
  Receipt Date: 20120611
  Transmission Date: 20120825
  Serious: Yes (Life-Threatening)
  Sender: FDA-Public Use
  Company Number: None

PATIENT
  Age: 62 Year
  Sex: Female
  Weight: 49.8957 kg

DRUGS (1)
  1. SYNTHROID [Suspect]
     Indication: HYPOTHYROIDISM
     Dosage: 100MCG EVERY OTHER DAY PO
     Route: 048
     Dates: start: 20120310, end: 20120608

REACTIONS (3)
  - BLOOD THYROID STIMULATING HORMONE DECREASED [None]
  - FEELING ABNORMAL [None]
  - PRODUCT QUALITY ISSUE [None]
